FAERS Safety Report 18250478 (Version 1)
Quarter: 2020Q3

REPORT INFORMATION
  Report Type: Spontaneous
  Country: US (occurrence: US)
  Receive Date: 20200910
  Receipt Date: 20200910
  Transmission Date: 20201103
  Serious: Yes (Other)
  Sender: FDA-Public Use
  Company Number: US-GW PHARMA-202008USGW02999

PATIENT

DRUGS (1)
  1. EPIDIOLEX [Suspect]
     Active Substance: CANNABIDIOL
     Indication: LENNOX-GASTAUT SYNDROME
     Dosage: 150 MILLIGRAM, BID
     Route: 048
     Dates: start: 20200424

REACTIONS (4)
  - Head titubation [Unknown]
  - Condition aggravated [Unknown]
  - Hypersomnia [Unknown]
  - Tonic convulsion [Unknown]

NARRATIVE: CASE EVENT DATE: 2020
